FAERS Safety Report 5874157-X (Version None)
Quarter: 2008Q3

REPORT INFORMATION
  Report Type: 
  Country: None (occurrence: None)
  Receive Date: 20080905
  Receipt Date: 20080905
  Transmission Date: 20090109
  Serious: Yes (Other)
  Sender: FDA-Public Use
  Company Number: None

PATIENT
  Age: 52 Year
  Sex: Female
  Weight: 81.6475 kg

DRUGS (1)
  1. CYMBALTA [Suspect]
     Indication: FIBROMYALGIA
     Dosage: ONE CAPSUL DAILY PO
     Route: 048
     Dates: start: 20060601, end: 20080820

REACTIONS (8)
  - CHEST PAIN [None]
  - DIZZINESS [None]
  - DRUG WITHDRAWAL SYNDROME [None]
  - HEADACHE [None]
  - MYALGIA [None]
  - NECK PAIN [None]
  - PALPITATIONS [None]
  - PARAESTHESIA [None]
